FAERS Safety Report 23645753 (Version 2)
Quarter: 2024Q2

REPORT INFORMATION
  Report Type: Spontaneous
  Country: DK (occurrence: DK)
  Receive Date: 20240319
  Receipt Date: 20240406
  Transmission Date: 20240716
  Serious: Yes (Death, Other)
  Sender: FDA-Public Use
  Company Number: DK-TEVA-VS-3169880

PATIENT
  Age: 52 Year
  Sex: Female

DRUGS (29)
  1. LENALIDOMIDE [Suspect]
     Active Substance: LENALIDOMIDE
     Indication: Plasma cell myeloma
     Dosage: 20 SERIES OF TREATMENT; AFTER FOURTH ASCT
     Route: 065
     Dates: end: 2018
  2. LENALIDOMIDE [Suspect]
     Active Substance: LENALIDOMIDE
     Indication: Plasma cell myeloma
     Dosage: 8 SERIES
     Route: 065
     Dates: start: 2018, end: 2018
  3. DARATUMUMAB [Suspect]
     Active Substance: DARATUMUMAB
     Indication: Plasma cell myeloma
     Dosage: ONE TREATMENT
     Route: 065
     Dates: start: 2018, end: 2018
  4. DARATUMUMAB [Suspect]
     Active Substance: DARATUMUMAB
     Indication: Plasma cell myeloma
     Dosage: 2 SERIES
     Route: 065
     Dates: start: 2021, end: 2021
  5. MELPHALAN [Suspect]
     Active Substance: MELPHALAN
     Indication: Plasma cell myeloma
     Dosage: HIGH-DOSE PRIOR TO THE FIRST ASCT
     Route: 065
     Dates: start: 2005, end: 2005
  6. MELPHALAN [Suspect]
     Active Substance: MELPHALAN
     Indication: Plasma cell myeloma
     Dosage: HIGH DOSE PRIOR TO THE THIRD ASCT
     Route: 065
     Dates: start: 2014, end: 2014
  7. MELPHALAN [Suspect]
     Active Substance: MELPHALAN
     Indication: Plasma cell myeloma
     Dosage: HIGH DOSE PRIOR TO THE FOURTH ASCT
     Route: 065
     Dates: start: 2016, end: 2016
  8. MELPHALAN [Suspect]
     Active Substance: MELPHALAN
     Indication: Plasma cell myeloma
     Dosage: HIGH DOSE PRIOR TO SECOND ASCT
     Route: 065
     Dates: start: 2010, end: 2010
  9. POMALIDOMIDE [Suspect]
     Active Substance: POMALIDOMIDE
     Indication: Plasma cell myeloma
     Dosage: 21 SERIES
     Route: 065
     Dates: start: 2019, end: 2021
  10. THALIDOMIDE [Suspect]
     Active Substance: THALIDOMIDE
     Indication: Plasma cell myeloma
     Dosage: PRIOR TO THE FOURTH ASCT
     Route: 065
     Dates: start: 2016, end: 2016
  11. BENDAMUSTINE [Suspect]
     Active Substance: BENDAMUSTINE
     Indication: Plasma cell myeloma
     Dosage: 2 SERIES
     Route: 065
     Dates: start: 2021, end: 2021
  12. CYCLOPHOSPHAMIDE [Suspect]
     Active Substance: CYCLOPHOSPHAMIDE
     Indication: Plasma cell myeloma
     Dosage: PRIOR TO SECOND ASCT
     Route: 065
     Dates: start: 2010, end: 2010
  13. CYCLOPHOSPHAMIDE [Suspect]
     Active Substance: CYCLOPHOSPHAMIDE
     Indication: Plasma cell myeloma
     Dosage: 13 SERIES OF TREATMENTS
     Route: 065
     Dates: start: 2019, end: 2021
  14. CYCLOPHOSPHAMIDE [Suspect]
     Active Substance: CYCLOPHOSPHAMIDE
     Indication: Plasma cell myeloma
     Dosage: PRIOR TO THE THIRD ASCT
     Route: 065
     Dates: start: 2014, end: 2014
  15. CYCLOPHOSPHAMIDE [Suspect]
     Active Substance: CYCLOPHOSPHAMIDE
     Indication: Plasma cell myeloma
     Dosage: PRIOR TO THE FIRST ASCT
     Route: 065
     Dates: start: 2005, end: 2005
  16. CARFILZOMIB [Suspect]
     Active Substance: CARFILZOMIB
     Indication: Plasma cell myeloma
     Dosage: 8 SERIES
     Route: 065
     Dates: start: 2018, end: 2018
  17. BORTEZOMIB [Suspect]
     Active Substance: BORTEZOMIB
     Indication: Plasma cell myeloma
     Dosage: PRIOR TO THE FOURTH ASCT
     Route: 065
     Dates: start: 2016, end: 2016
  18. BORTEZOMIB [Suspect]
     Active Substance: BORTEZOMIB
     Indication: Plasma cell myeloma
     Dosage: ONE TREATMENT
     Route: 065
     Dates: start: 2018, end: 2018
  19. BORTEZOMIB [Suspect]
     Active Substance: BORTEZOMIB
     Indication: Plasma cell myeloma
     Dosage: 2 SERIES
     Route: 065
     Dates: start: 2021, end: 2021
  20. BORTEZOMIB [Suspect]
     Active Substance: BORTEZOMIB
     Indication: Plasma cell myeloma
     Dosage: PRIOR TO THE THIRD ASCT
     Route: 065
     Dates: start: 2014, end: 2014
  21. DEXAMETHASONE [Suspect]
     Active Substance: DEXAMETHASONE
     Indication: Plasma cell myeloma
     Dosage: PRIOR TO THE FOURTH ASCT
     Route: 065
     Dates: start: 2016, end: 2016
  22. DEXAMETHASONE [Suspect]
     Active Substance: DEXAMETHASONE
     Indication: Plasma cell myeloma
     Dosage: 21 SERIES
     Route: 065
     Dates: start: 2019, end: 2021
  23. DEXAMETHASONE [Suspect]
     Active Substance: DEXAMETHASONE
     Indication: Plasma cell myeloma
     Dosage: 8 SERIES
     Route: 065
     Dates: start: 2018, end: 2018
  24. DEXAMETHASONE [Suspect]
     Active Substance: DEXAMETHASONE
     Indication: Plasma cell myeloma
     Dosage: ONE TREATMENT
     Route: 065
     Dates: start: 2018, end: 2018
  25. DEXAMETHASONE [Suspect]
     Active Substance: DEXAMETHASONE
     Indication: Plasma cell myeloma
     Dosage: FOR 20 SERIES OF TREATMENT; AFTER FOURTH ASCT
     Route: 065
     Dates: end: 2018
  26. DEXAMETHASONE [Suspect]
     Active Substance: DEXAMETHASONE
     Indication: Plasma cell myeloma
     Dosage: PRIOR TO THE FIRST ASCT
     Route: 065
     Dates: start: 2005, end: 2005
  27. DEXAMETHASONE [Suspect]
     Active Substance: DEXAMETHASONE
     Indication: Plasma cell myeloma
     Dosage: 2 SERIES
     Route: 065
     Dates: start: 2021, end: 2021
  28. DEXAMETHASONE [Suspect]
     Active Substance: DEXAMETHASONE
     Indication: Plasma cell myeloma
     Dosage: PRIOR TO SECOND ASCT
     Route: 065
     Dates: start: 2010, end: 2010
  29. DEXAMETHASONE [Suspect]
     Active Substance: DEXAMETHASONE
     Indication: Plasma cell myeloma
     Dosage: PRIOR TO THE THIRD ASCT
     Route: 065
     Dates: start: 2014, end: 2014

REACTIONS (3)
  - Drug ineffective [Unknown]
  - Toxicity to various agents [Unknown]
  - Progressive multifocal leukoencephalopathy [Fatal]

NARRATIVE: CASE EVENT DATE: 20180101
